FAERS Safety Report 9247600 (Version 1)
Quarter: 2013Q1

REPORT INFORMATION
  Report Type: Spontaneous
  Country: US (occurrence: None)
  Receive Date: 20121130
  Receipt Date: 20121130
  Transmission Date: 20140127
  Serious: Yes (Other)
  Sender: FDA-Public Use
  Company Number: 1111USA02493

PATIENT
  Age: 77 Year
  Sex: Female
  Weight: 57.6 kg

DRUGS (2)
  1. FOSAMAX [Suspect]
     Route: 048
     Dates: start: 19970827, end: 20010328
  2. FOSAMAX [Suspect]
     Dosage: 1 UNK, QW, ORAL
     Dates: start: 20061209, end: 20081212

REACTIONS (25)
  - Osteonecrosis of jaw [None]
  - Tooth disorder [None]
  - Fall [None]
  - Spinal fracture [None]
  - Urge incontinence [None]
  - Abdominal distension [None]
  - Uterine disorder [None]
  - Pulmonary mass [None]
  - Arteriosclerosis coronary artery [None]
  - Aortic calcification [None]
  - Thyroid neoplasm [None]
  - Spondylitis [None]
  - Thoracic vertebral fracture [None]
  - Renal cyst [None]
  - Scoliosis [None]
  - Spinal compression fracture [None]
  - Exostosis of jaw [None]
  - Tooth disorder [None]
  - Exostosis of jaw [None]
  - Dental caries [None]
  - Gingival disorder [None]
  - Gingival bleeding [None]
  - Gingival recession [None]
  - Gingivitis [None]
  - Tooth fracture [None]
